FAERS Safety Report 4667911-3 (Version None)
Quarter: 2005Q2

REPORT INFORMATION
  Report Type: 
  Country: None (occurrence: None)
  Receive Date: 20050520
  Receipt Date: 20050513
  Transmission Date: 20051028
  Serious: Yes (Other)
  Sender: FDA-Public Use
  Company Number: PHBS2005BR06767

PATIENT
  Age: 26 Year
  Sex: Female
  Weight: 68 kg

DRUGS (2)
  1. METHERGINE [Suspect]
     Indication: ABORTION SPONTANEOUS
     Dosage: 0.13 MG, Q3H
     Route: 048
  2. METHERGINE [Suspect]
     Dosage: 0.13 MG, Q3H
     Route: 048
     Dates: start: 20050509

REACTIONS (3)
  - ABDOMINAL PAIN [None]
  - ABORTION SPONTANEOUS [None]
  - VAGINAL HAEMORRHAGE [None]
